FAERS Safety Report 17299993 (Version 1)
Quarter: 2020Q1

REPORT INFORMATION
  Report Type: Spontaneous
  Country: US (occurrence: US)
  Receive Date: 20200122
  Receipt Date: 20200122
  Transmission Date: 20200409
  Serious: No
  Sender: FDA-Public Use
  Company Number: US-ALLERGAN-1926668US

PATIENT
  Age: 72 Year
  Sex: Male

DRUGS (10)
  1. CLONAZEPAM. [Concomitant]
     Active Substance: CLONAZEPAM
     Indication: HEART RATE IRREGULAR
  2. OASIS EYE DROPS [Concomitant]
     Indication: DRY EYE
     Dosage: UNK, PRN
     Route: 047
  3. DEXILANT [Concomitant]
     Active Substance: DEXLANSOPRAZOLE
     Indication: GASTROOESOPHAGEAL REFLUX DISEASE
     Dosage: UNK, QAM
     Route: 048
  4. DEXILANT [Concomitant]
     Active Substance: DEXLANSOPRAZOLE
     Indication: DYSPEPSIA
  5. DOXYCYCLINE. [Concomitant]
     Active Substance: DOXYCYCLINE
     Indication: ROSACEA
     Dosage: UNK, QD
  6. LISINOPRIL. [Concomitant]
     Active Substance: LISINOPRIL
     Indication: HYPERTENSION
     Dosage: UNK, QD
     Route: 048
  7. SIMVASTATIN. [Concomitant]
     Active Substance: SIMVASTATIN
     Indication: BLOOD CHOLESTEROL INCREASED
     Dosage: UNK, QD
     Route: 048
  8. RESTASIS [Suspect]
     Active Substance: CYCLOSPORINE
     Indication: DRY EYE
     Dosage: 2 GTT, BID
     Dates: start: 20190608, end: 20190627
  9. FISH OIL OMEGA 3 [Concomitant]
     Active Substance: FISH OIL
     Indication: SUPPLEMENTATION THERAPY
     Dosage: 2000 UNITS, QD
     Route: 048
  10. CLONAZEPAM. [Concomitant]
     Active Substance: CLONAZEPAM
     Indication: ANXIETY
     Route: 048

REACTIONS (3)
  - Eye irritation [Recovered/Resolved]
  - Alopecia [Recovering/Resolving]
  - Headache [Recovered/Resolved]

NARRATIVE: CASE EVENT DATE: 201906
